FAERS Safety Report 10348080 (Version 2)
Quarter: 2014Q3

REPORT INFORMATION
  Report Type: Spontaneous
  Country: US (occurrence: None)
  Receive Date: 20140723
  Receipt Date: 20140728
  Transmission Date: 20150326
  Serious: Yes (Other)
  Sender: FDA-Public Use
  Company Number: 2014RT000084

PATIENT
  Sex: Female

DRUGS (1)
  1. PROCYSBI DELAYED-RELEASE [Suspect]
     Active Substance: CYSTEAMINE BITARTRATE
     Indication: PRODUCT USED FOR UNKNOWN INDICATION
     Route: 048
     Dates: start: 201405

REACTIONS (7)
  - Nausea [None]
  - Renal failure acute [None]
  - Blood alkaline phosphatase increased [None]
  - Kidney transplant rejection [None]
  - Gastroenteritis [None]
  - Vomiting [None]
  - Gastroenteritis viral [None]

NARRATIVE: CASE EVENT DATE: 201405
